FAERS Safety Report 6194778-7 (Version None)
Quarter: 2009Q2

REPORT INFORMATION
  Report Type: 
  Country: None (occurrence: None)
  Receive Date: 20090515
  Receipt Date: 20090515
  Transmission Date: 20091009
  Serious: Yes (Other)
  Sender: FDA-Public Use
  Company Number: None

PATIENT
  Sex: Female
  Weight: 68.0396 kg

DRUGS (2)
  1. OPTIVE SENSITIVE LUBRICANT EYE D ALLERGAN, INC. [Suspect]
     Indication: KERATOMILEUSIS
     Dosage: INDIVIDUAL USE VIALS 4X/DAILY OPHTHALMIC 1 DOSE
     Route: 047
     Dates: start: 20090512, end: 20090512
  2. OPTIVE SENSITIVE LUBRICANT EYE D ALLERGAN, INC. [Suspect]
     Indication: POSTOPERATIVE CARE
     Dosage: INDIVIDUAL USE VIALS 4X/DAILY OPHTHALMIC 1 DOSE
     Route: 047
     Dates: start: 20090512, end: 20090512

REACTIONS (4)
  - CHEMICAL BURNS OF EYE [None]
  - INSTILLATION SITE REACTION [None]
  - PRODUCT QUALITY ISSUE [None]
  - VISUAL ACUITY REDUCED [None]
